FAERS Safety Report 10914997 (Version 1)
Quarter: 2015Q1

REPORT INFORMATION
  Report Type: Spontaneous
  Country: PH (occurrence: PH)
  Receive Date: 20150314
  Receipt Date: 20150314
  Transmission Date: 20150721
  Serious: Yes (Hospitalization, Other)
  Sender: FDA-Public Use
  Company Number: PH-MERCK-1503PHL006834

PATIENT
  Sex: Male

DRUGS (1)
  1. JANUVIA [Suspect]
     Active Substance: SITAGLIPTIN PHOSPHATE
     Indication: DIABETES MELLITUS
     Dosage: 50 MG, QD
     Route: 048
     Dates: start: 2009

REACTIONS (2)
  - Pneumonia [Recovered/Resolved]
  - Coronary artery bypass [Recovered/Resolved with Sequelae]

NARRATIVE: CASE EVENT DATE: 201502
